FAERS Safety Report 24750458 (Version 2)
Quarter: 2024Q4

REPORT INFORMATION
  Report Type: Spontaneous
  Country: CN (occurrence: CN)
  Receive Date: 20241218
  Receipt Date: 20241227
  Transmission Date: 20250115
  Serious: Yes (Hospitalization, Other)
  Sender: MERCK
  Company Number: CN-009507513-2412CHN005193

PATIENT
  Age: 75 Year
  Sex: Male

DRUGS (1)
  1. INVANZ [Suspect]
     Active Substance: ERTAPENEM SODIUM
     Indication: Pneumonia
     Dosage: 1 G, QD, IV DRIP
     Route: 041
     Dates: start: 20241119, end: 20241127

REACTIONS (4)
  - Platelet count decreased [Unknown]
  - Transfusion [Unknown]
  - Somnolence [Unknown]
  - Expired product administered [Unknown]

NARRATIVE: CASE EVENT DATE: 20241101
